FAERS Safety Report 14093740 (Version 3)
Quarter: 2018Q1

REPORT INFORMATION
  Report Type: Spontaneous
  Country: US (occurrence: US)
  Receive Date: 20171016
  Receipt Date: 20180306
  Transmission Date: 20180508
  Serious: No
  Sender: FDA-Public Use
  Company Number: US-ASTRAZENECA-2017SF04560

PATIENT
  Age: 25898 Day
  Sex: Male
  Weight: 93 kg

DRUGS (2)
  1. SYMBICORT [Suspect]
     Active Substance: BUDESONIDE\FORMOTEROL FUMARATE DIHYDRATE
     Indication: CHRONIC OBSTRUCTIVE PULMONARY DISEASE
     Dosage: 160/4.5 MCG  UNKNOWN
     Route: 055
     Dates: start: 20170910, end: 20171002
  2. SYMBICORT [Suspect]
     Active Substance: BUDESONIDE\FORMOTEROL FUMARATE DIHYDRATE
     Indication: ASTHMA
     Dosage: 160/4.5 MCG  UNKNOWN
     Route: 055
     Dates: start: 20170910, end: 20171002

REACTIONS (5)
  - Hypersensitivity [Not Recovered/Not Resolved]
  - Increased viscosity of bronchial secretion [Unknown]
  - Cough [Recovered/Resolved]
  - Chronic obstructive pulmonary disease [Unknown]
  - Increased bronchial secretion [Recovered/Resolved]

NARRATIVE: CASE EVENT DATE: 20170910
